FAERS Safety Report 17049781 (Version 2)
Quarter: 2019Q4

REPORT INFORMATION
  Report Type: Spontaneous
  Country: US (occurrence: US)
  Receive Date: 20191119
  Receipt Date: 20191220
  Transmission Date: 20200122
  Serious: No
  Sender: FDA-Public Use
  Company Number: US-TARO-2019TAR00765

PATIENT
  Age: 47 Year
  Sex: Female
  Weight: 145.13 kg

DRUGS (16)
  1. ALPRAZOLAM. [Concomitant]
     Active Substance: ALPRAZOLAM
  2. OXYBUTYNIN EXTENDED RELEASE [Concomitant]
     Active Substance: OXYBUTYNIN
     Dosage: 10 MG
     Route: 048
  3. IMIQUIMOD CREAM 5% [Suspect]
     Active Substance: IMIQUIMOD
     Indication: SQUAMOUS CELL CARCINOMA OF THE VAGINA
     Dosage: 1 PACKET ON OUTSIDE OF A TAMPON AND INSERTED, 3X/WEEK
     Route: 067
     Dates: start: 201907, end: 201909
  4. CYCLOBENZAPRINE. [Concomitant]
     Active Substance: CYCLOBENZAPRINE
     Dosage: UNK, AS NEEDED
  5. ESCITALOPRAM [Concomitant]
     Active Substance: ESCITALOPRAM OXALATE
  6. OXYBUTYNIN EXTENDED RELEASE [Concomitant]
     Active Substance: OXYBUTYNIN
     Dosage: 5 MG
     Route: 048
  7. VENLAFAXINE [Concomitant]
     Active Substance: VENLAFAXINE HYDROCHLORIDE
  8. METFORMIN [Concomitant]
     Active Substance: METFORMIN HYDROCHLORIDE
     Dosage: 1000 MG, 2X/DAY WITH MORNING AND EVENING MEALS
     Route: 048
  9. OMEPRAZOLE. [Concomitant]
     Active Substance: OMEPRAZOLE
  10. TYLENOL [Concomitant]
     Active Substance: ACETAMINOPHEN
     Dosage: UNK, AS NEEDED
  11. ALLEGRA [Concomitant]
     Active Substance: FEXOFENADINE HYDROCHLORIDE
  12. HYDROCHLOROTHIAZIDE. [Concomitant]
     Active Substance: HYDROCHLOROTHIAZIDE
  13. LAMOTRIGINE. [Concomitant]
     Active Substance: LAMOTRIGINE
  14. LOSARTAN. [Concomitant]
     Active Substance: LOSARTAN
  15. NORCO [Concomitant]
     Active Substance: ACETAMINOPHEN\HYDROCODONE BITARTRATE
     Dosage: UNK, AS NEEDED
  16. ADVIL [Concomitant]
     Active Substance: IBUPROFEN
     Dosage: UNK, AS NEEDED

REACTIONS (19)
  - Sleep disorder [Unknown]
  - Vaginal infection [Recovering/Resolving]
  - Vulvovaginal pain [Recovering/Resolving]
  - Vulvovaginal swelling [Recovering/Resolving]
  - Diarrhoea [Unknown]
  - Vaginal discharge [Recovering/Resolving]
  - Bladder discomfort [Recovered/Resolved]
  - Folliculitis [Recovered/Resolved]
  - Vaginal disorder [Recovering/Resolving]
  - Vulvovaginal dryness [Unknown]
  - Application site irritation [Recovering/Resolving]
  - Application site haemorrhage [Unknown]
  - Application site pruritus [Unknown]
  - Off label use [Recovered/Resolved]
  - Incorrect route of product administration [Recovered/Resolved]
  - Bladder irritation [Recovering/Resolving]
  - Nausea [Recovering/Resolving]
  - Urinary tract infection [Recovering/Resolving]
  - Application site inflammation [Unknown]

NARRATIVE: CASE EVENT DATE: 2019
